FAERS Safety Report 24410939 (Version 1)
Quarter: 2024Q4

REPORT INFORMATION
  Report Type: Spontaneous
  Country: GB (occurrence: GB)
  Receive Date: 20241008
  Receipt Date: 20241008
  Transmission Date: 20250115
  Serious: Yes (Other)
  Sender: MYLAN
  Company Number: GB-MHRA-TPP3056352C11292121YC1727873319027

PATIENT
  Age: 70 Year
  Sex: Female
  Weight: 82 kg

DRUGS (16)
  1. AMLODIPINE [Suspect]
     Active Substance: AMLODIPINE BESYLATE
     Indication: Ill-defined disorder
     Dosage: 5 MILLIGRAM
     Route: 065
     Dates: start: 20240902
  2. DOXYCYCLINE [Concomitant]
     Active Substance: DOXYCYCLINE
     Indication: Ill-defined disorder
     Dosage: UNK (TWO NOW THEN ONE DAILY)
     Route: 065
     Dates: start: 20240703, end: 20240710
  3. DIHYDROCODEINE [Concomitant]
     Active Substance: DIHYDROCODEINE
     Indication: Ill-defined disorder
     Dosage: UNK (TAKE ONE EVERY 4-6 HRS)
     Route: 065
     Dates: start: 20240711, end: 20240718
  4. COCODAMOL [Concomitant]
     Active Substance: ACETAMINOPHEN\CODEINE PHOSPHATE
     Indication: Ill-defined disorder
     Dosage: UNK UNK, QID (ONE OR TWO TABLETS TO BE TAKEN FOUR TIMES DAILY)
     Route: 065
     Dates: start: 20240719, end: 20240816
  5. NITROFURANTOIN [Concomitant]
     Active Substance: NITROFURANTOIN
     Indication: Ill-defined disorder
     Dosage: UNK UNK, BID (TAKE ONE TWICE DAILY)
     Route: 065
     Dates: start: 20240808, end: 20240815
  6. INDAPAMIDE [Concomitant]
     Active Substance: INDAPAMIDE
     Indication: Ill-defined disorder
     Dosage: UNK UNK, AM (TAKE ONE EACH MORNING)
     Route: 065
     Dates: start: 20240930
  7. ISPAGHULA EXTRACT\PSYLLIUM [Concomitant]
     Active Substance: HERBALS\PLANTAGO OVATA SEED\PLANTAGO SEED
     Indication: Ill-defined disorder
     Dosage: UNK UNK, BID (HALF TO ONE SACHET TO BE TAKEN TWICE DAILY FOR)
     Route: 065
     Dates: start: 20230131
  8. LOPERAMIDE [Concomitant]
     Active Substance: LOPERAMIDE
     Indication: Ill-defined disorder
     Dosage: 1 DOSAGE FORM, AM (ONE CAPSULE EVERY MORNING )
     Route: 065
     Dates: start: 20230131
  9. PANTOPRAZOLE [Concomitant]
     Active Substance: PANTOPRAZOLE
     Indication: Ill-defined disorder
     Dosage: UNK UNK, QD (TAKE ONE DAILY)
     Route: 065
     Dates: start: 20230131
  10. SODIUM ALGINATE [Concomitant]
     Active Substance: SODIUM ALGINATE
     Indication: Ill-defined disorder
     Dosage: UNK UNK, QID (5ML - 10ML 4 TIMES/DAY)
     Route: 065
     Dates: start: 20230131
  11. ZOPICLONE [Concomitant]
     Active Substance: ZOPICLONE
     Indication: Ill-defined disorder
     Dosage: UNK UNK, PM (TAKE ONE AT NIGHT)
     Route: 065
     Dates: start: 20230131
  12. AMITRIPTYLINE HYDROCHLORIDE [Concomitant]
     Active Substance: AMITRIPTYLINE HYDROCHLORIDE
     Indication: Ill-defined disorder
     Dosage: 1-3 NOCTE
     Route: 065
     Dates: start: 20230310
  13. Cetraben [Concomitant]
     Indication: Ill-defined disorder
     Dosage: UNK (USE AS HAND, FACE AND BODY WASH AND MOISTURISER)
     Route: 065
     Dates: start: 20230404
  14. CHOLECALCIFEROL [Concomitant]
     Active Substance: CHOLECALCIFEROL
     Indication: Ill-defined disorder
     Dosage: UNK (BUYS BOUGHT OVER THE COUNTER - DO NOT ISSUE OR)
     Route: 065
     Dates: start: 20230404
  15. MIRTAZAPINE [Concomitant]
     Active Substance: MIRTAZAPINE
     Indication: Ill-defined disorder
     Dosage: 1 DOSAGE FORM, PM (ONE TABLET TO BE TAKEN EACH NIGHT)
     Route: 065
     Dates: start: 20240206
  16. AMLODIPINE [Concomitant]
     Active Substance: AMLODIPINE BESYLATE
     Indication: Ill-defined disorder
     Dosage: UNK UNK, QD (TAKE ONE DAILY)
     Route: 065
     Dates: start: 20240913

REACTIONS (2)
  - Headache [Recovered/Resolved]
  - Hyperhidrosis [Unknown]

NARRATIVE: CASE EVENT DATE: 20240902
